FAERS Safety Report 9522035 (Version 1)
Quarter: 2013Q1

REPORT INFORMATION
  Report Type: Spontaneous
  Country: US (occurrence: None)
  Receive Date: 20130305
  Receipt Date: 20130305
  Transmission Date: 20140127
  Serious: Yes (Hospitalization)
  Sender: FDA-Public Use
  Company Number: 163-21880-12081507

PATIENT
  Age: 44 Year
  Sex: Female
  Weight: 83.92 kg

DRUGS (6)
  1. REVLIMID [Suspect]
     Indication: PLASMA CELL MYELOMA
     Dosage: 25 MG, 14 IN 21 D, PO
     Route: 048
     Dates: start: 20120719
  2. ACYCLOVIR (ACICLOVIR) (UNKNOWN) [Concomitant]
  3. DEXAMETHASONE (DEXAMETHASONE) (UNKNOWN) [Concomitant]
  4. MULTIVITAMIN (MULTIVITAMINS) (UNKNOWN) [Concomitant]
  5. PANTOPRAZOLE (PANTOPROZOLE) (UNKNOWN) [Concomitant]
  6. SERTRALINE (SERTRALINE) (UNKNOWN) [Concomitant]

REACTIONS (2)
  - Syncope [None]
  - Haemoglobin decreased [None]
